FAERS Safety Report 15691633 (Version 1)
Quarter: 2018Q4

REPORT INFORMATION
  Report Type: Spontaneous
  Country: CN (occurrence: CN)
  Receive Date: 20181205
  Receipt Date: 20181205
  Transmission Date: 20190205
  Serious: Yes (Other)
  Sender: FDA-Public Use
  Company Number: PHHY2018CN171536

PATIENT
  Age: 52 Year
  Sex: Female

DRUGS (1)
  1. IMATINIB. [Suspect]
     Active Substance: IMATINIB MESYLATE
     Indication: CHRONIC MYELOID LEUKAEMIA
     Dosage: 400 MG, QD
     Route: 065

REACTIONS (4)
  - Thrombocytopenia [Recovered/Resolved]
  - Immune thrombocytopenic purpura [Unknown]
  - Hypergammaglobulinaemia benign monoclonal [Unknown]
  - Proteinuria [Unknown]

NARRATIVE: CASE EVENT DATE: 20170707
